FAERS Safety Report 11633030 (Version 1)
Quarter: 2015Q4

REPORT INFORMATION
  Report Type: Spontaneous
  Country: US (occurrence: None)
  Receive Date: 20151014
  Receipt Date: 20151014
  Transmission Date: 20160304
  Serious: Yes (Other)
  Sender: FDA-Public Use
  Company Number: None

PATIENT
  Age: 73 Year
  Sex: Female
  Weight: 56.7 kg

DRUGS (9)
  1. LEVOTHYROXINE. [Concomitant]
     Active Substance: LEVOTHYROXINE
  2. COMBIGAN [Suspect]
     Active Substance: BRIMONIDINE TARTRATE\TIMOLOL MALEATE
     Indication: NORMAL TENSION GLAUCOMA
     Route: 047
  3. COMPLEX B-VITAMIN [Concomitant]
  4. MULTI-VITAMIN [Concomitant]
     Active Substance: .ALPHA.-TOCOPHEROL ACETATE, DL-\ASCORBIC ACID\CYANOCOBALAMIN\FLUORIDE ION\FOLIC ACID\NIACIN\PYRIDOXINE\RIBOFLAVIN\THIAMINE\VITAMIN A\VITAMIN D
  5. VITAMIN B12 [Concomitant]
     Active Substance: CYANOCOBALAMIN
  6. CALCIUM [Concomitant]
     Active Substance: CALCIUM
  7. PROLIA [Concomitant]
     Active Substance: DENOSUMAB
  8. LORAZEPAN [Concomitant]
     Active Substance: LORAZEPAM
  9. OMEGA-3 ACIDS [Concomitant]
     Active Substance: OMEGA-3 FATTY ACIDS

REACTIONS (11)
  - Pharyngeal oedema [None]
  - Visual impairment [None]
  - Musculoskeletal disorder [None]
  - Fatigue [None]
  - Feeling cold [None]
  - Eye pain [None]
  - Dysphonia [None]
  - Dry mouth [None]
  - Eye pruritus [None]
  - Mood altered [None]
  - Oral pain [None]

NARRATIVE: CASE EVENT DATE: 20151007
